FAERS Safety Report 25600039 (Version 1)
Quarter: 2025Q3

REPORT INFORMATION
  Report Type: Spontaneous
  Country: EU (occurrence: EU)
  Receive Date: 20250724
  Receipt Date: 20250724
  Transmission Date: 20251021
  Serious: No
  Sender: ALKEM
  Company Number: None

PATIENT
  Sex: Female

DRUGS (13)
  1. ESCITALOPRAM [Suspect]
     Active Substance: ESCITALOPRAM OXALATE
     Indication: Product used for unknown indication
     Route: 065
  2. QUETIAPINE FUMARATE [Suspect]
     Active Substance: QUETIAPINE FUMARATE
     Indication: Initial insomnia
     Route: 065
  3. LAMOTRIGINE [Suspect]
     Active Substance: LAMOTRIGINE
     Indication: Mood swings
     Route: 065
  4. TRAZODONE [Suspect]
     Active Substance: TRAZODONE HYDROCHLORIDE
     Indication: Mood swings
     Route: 065
  5. BUPROPION [Concomitant]
     Active Substance: BUPROPION
     Indication: Disturbance in attention
     Dosage: 150 MILLIGRAM, QD
     Route: 065
  6. BUPROPION [Concomitant]
     Active Substance: BUPROPION
     Route: 065
  7. CHLORPROTHIXENE [Concomitant]
     Active Substance: CHLORPROTHIXENE
     Indication: Initial insomnia
     Route: 065
  8. FLUOXETINE [Concomitant]
     Active Substance: FLUOXETINE HYDROCHLORIDE
     Indication: Mood swings
     Route: 065
  9. Iprazochrome [Concomitant]
     Indication: Migraine with aura
     Route: 065
  10. SERTRALINE [Concomitant]
     Active Substance: SERTRALINE HYDROCHLORIDE
     Indication: Mood swings
     Route: 065
  11. Tryptane [Concomitant]
     Indication: Migraine with aura
     Route: 065
  12. VEDOLIZUMAB [Concomitant]
     Active Substance: VEDOLIZUMAB
     Indication: Crohn^s disease
     Route: 065
  13. VALPROIC ACID [Concomitant]
     Active Substance: VALPROIC ACID
     Indication: Mood swings
     Route: 065

REACTIONS (3)
  - Hypomania [Recovering/Resolving]
  - Abdominal pain [Unknown]
  - Therapy partial responder [Unknown]
